FAERS Safety Report 18461384 (Version 1)
Quarter: 2020Q4

REPORT INFORMATION
  Report Type: Spontaneous
  Country: US (occurrence: US)
  Receive Date: 20201103
  Receipt Date: 20201103
  Transmission Date: 20210114
  Serious: Yes (Hospitalization)
  Sender: FDA-Public Use
  Company Number: None

PATIENT
  Age: 44 Year
  Sex: Female

DRUGS (9)
  1. CAPECITABINE 150MG TAB [Suspect]
     Active Substance: CAPECITABINE
     Indication: BREAST CANCER FEMALE
     Dosage: ?          OTHER ROUTE:PO - 14D ON - 7 D OFF?
     Route: 048
     Dates: start: 20200722
  2. MODAFINIL. [Concomitant]
     Active Substance: MODAFINIL
  3. PANTOPRAZOLE [Concomitant]
     Active Substance: PANTOPRAZOLE
  4. DESVENLAFAX [Concomitant]
  5. TAMOXIFEN [Concomitant]
     Active Substance: TAMOXIFEN
  6. OXYCODONE [Concomitant]
     Active Substance: OXYCODONE
  7. NP THYROID [Concomitant]
     Active Substance: LEVOTHYROXINE\LIOTHYRONINE
  8. IBUPROFEN. [Concomitant]
     Active Substance: IBUPROFEN
  9. CAPECITABINE 500MG TAB [Suspect]
     Active Substance: CAPECITABINE
     Indication: BREAST CANCER FEMALE
     Dosage: ?          OTHER ROUTE:PO - 14 D ON - 7 D OFF?
     Route: 048
     Dates: start: 20200722

REACTIONS (2)
  - Blister [None]
  - Product dose omission issue [None]

NARRATIVE: CASE EVENT DATE: 20201030
